FAERS Safety Report 7636563-2 (Version None)
Quarter: 2011Q3

REPORT INFORMATION
  Report Type: 
  Country: None (occurrence: None)
  Receive Date: 20110726
  Receipt Date: 20110713
  Transmission Date: 20111222
  Serious: No
  Sender: FDA-Public Use
  Company Number: US-BIOGENIDEC-2011BI026257

PATIENT
  Sex: Male

DRUGS (1)
  1. TYSABRI [Suspect]
     Indication: MULTIPLE SCLEROSIS
     Route: 042
     Dates: start: 20100427

REACTIONS (10)
  - AMNESIA [None]
  - MUSCULAR WEAKNESS [None]
  - ANGIOPATHY [None]
  - MUSCLE SPASTICITY [None]
  - SOMNOLENCE [None]
  - FATIGUE [None]
  - DEPRESSED MOOD [None]
  - MENTAL IMPAIRMENT [None]
  - MEDICAL DEVICE PAIN [None]
  - RASH [None]
